FAERS Safety Report 7007061-4 (Version None)
Quarter: 2010Q3

REPORT INFORMATION
  Report Type: 
  Country: None (occurrence: None)
  Receive Date: 20100913
  Receipt Date: 20100104
  Transmission Date: 20110219
  Serious: Yes (Hospitalization)
  Sender: FDA-Public Use
  Company Number: 2010SP000796

PATIENT
  Age: 43 Year
  Sex: Female

DRUGS (1)
  1. NUVARING [Suspect]
     Indication: MENORRHAGIA
     Dosage: ;VAG
     Route: 067
     Dates: start: 20051001, end: 20060201

REACTIONS (3)
  - CEREBROVASCULAR ACCIDENT [None]
  - HYPERCOAGULATION [None]
  - UTERINE ENLARGEMENT [None]
